FAERS Safety Report 8517932-5 (Version None)
Quarter: 2012Q3

REPORT INFORMATION
  Report Type: 
  Country: None (occurrence: None)
  Receive Date: 20120718
  Receipt Date: 20110728
  Transmission Date: 20120928
  Serious: Yes (Hospitalization)
  Sender: FDA-Public Use
  Company Number: US-BRISTOL-MYERS SQUIBB COMPANY-15916885

PATIENT
  Age: 67 Year
  Sex: Female

DRUGS (4)
  1. COUMADIN [Suspect]
     Dosage: 1DF:1 DOSE
     Dates: start: 20110617
  2. LOVENOX [Suspect]
     Dates: start: 20110617
  3. PHENYTOIN SODIUM [Concomitant]
  4. HEPARIN SODIUM [Suspect]
     Dates: start: 20110601

REACTIONS (1)
  - CEREBRAL HAEMORRHAGE [None]
